FAERS Safety Report 6294715-0 (Version None)
Quarter: 2009Q3

REPORT INFORMATION
  Report Type: 
  Country: None (occurrence: None)
  Receive Date: 20090803
  Receipt Date: 20090723
  Transmission Date: 20100115
  Serious: Yes (Hospitalization)
  Sender: FDA-Public Use
  Company Number: B0585370A

PATIENT
  Sex: Female
  Weight: 56 kg

DRUGS (7)
  1. TYVERB [Suspect]
     Dosage: 2500MG PER DAY
     Route: 048
     Dates: start: 20090709
  2. XELODA [Suspect]
     Dosage: 1650MG PER DAY
     Route: 048
     Dates: start: 20090709
  3. TARKA [Concomitant]
     Route: 048
     Dates: start: 20030101
  4. ALDACTONE [Concomitant]
     Route: 048
     Dates: start: 20030101
  5. PREDNISONE [Concomitant]
     Route: 048
     Dates: start: 20090702
  6. LANSOPRAZOLE [Concomitant]
     Indication: PROPHYLAXIS
     Route: 048
     Dates: start: 20090601
  7. PRAZEPAM [Concomitant]
     Route: 065

REACTIONS (16)
  - ABDOMINAL PAIN [None]
  - ASTHENIA [None]
  - BLOOD BILIRUBIN INCREASED [None]
  - DECREASED APPETITE [None]
  - DEHYDRATION [None]
  - DIARRHOEA [None]
  - DYSPHAGIA [None]
  - GENERAL PHYSICAL HEALTH DETERIORATION [None]
  - HYPERMAGNESAEMIA [None]
  - HYPOCHLORAEMIA [None]
  - HYPOKALAEMIA [None]
  - HYPONATRAEMIA [None]
  - HYPOPHOSPHATAEMIA [None]
  - HYPOTENSION [None]
  - NAUSEA [None]
  - VOMITING [None]
